FAERS Safety Report 24433750 (Version 3)
Quarter: 2024Q4

REPORT INFORMATION
  Report Type: Spontaneous
  Country: US (occurrence: US)
  Receive Date: 20241014
  Receipt Date: 20241212
  Transmission Date: 20250115
  Serious: No
  Sender: PFIZER
  Company Number: US-PFIZER INC-202400271563

PATIENT
  Age: 6 Year
  Sex: Female
  Weight: 14.97 kg

DRUGS (3)
  1. GENOTROPIN [Suspect]
     Active Substance: SOMATROPIN
     Indication: Growth hormone deficiency
     Dosage: 0.5 EVERY DAY IN THE HIP, THE FATTY PART
  2. HYDROCORTISONE [Concomitant]
     Active Substance: HYDROCORTISONE
     Indication: Addison^s disease
     Dosage: 5 MG, 3X/DAY
  3. LEVOXYL [Concomitant]
     Active Substance: LEVOTHYROXINE SODIUM
     Indication: Thyroid disorder
     Dosage: DOSE IS .25 OR .5 PILL

REACTIONS (5)
  - Device information output issue [Not Recovered/Not Resolved]
  - Expired device used [Unknown]
  - Drug dose omission by device [Not Recovered/Not Resolved]
  - Laziness [Unknown]
  - Hypotonia [Unknown]

NARRATIVE: CASE EVENT DATE: 20241004
